FAERS Safety Report 4448817-1 (Version None)
Quarter: 2004Q3

REPORT INFORMATION
  Report Type: 
  Country: None (occurrence: None)
  Receive Date: 20040909
  Receipt Date: 20040825
  Transmission Date: 20050211
  Serious: Yes (Hospitalization)
  Sender: FDA-Public Use
  Company Number: 2004-BP-06613BP

PATIENT
  Age: 74 Year
  Sex: Female

DRUGS (5)
  1. SPIRIVA [Suspect]
     Indication: CHRONIC OBSTRUCTIVE AIRWAYS DISEASE
     Dosage: 18 MCG (18 MCG), IH
     Route: 055
     Dates: start: 20040802
  2. VERAPAMIL [Concomitant]
  3. LASIX [Concomitant]
  4. LANOXIN [Concomitant]
  5. BEXTRA [Concomitant]

REACTIONS (2)
  - DYSPNOEA [None]
  - EYE PAIN [None]
